FAERS Safety Report 24201793 (Version 1)
Quarter: 2024Q3

REPORT INFORMATION
  Report Type: Spontaneous
  Country: AU (occurrence: AU)
  Receive Date: 20240812
  Receipt Date: 20240812
  Transmission Date: 20241017
  Serious: Yes (Other)
  Sender: INCYTE
  Company Number: AU-002147023-NVSC2024AU158301

PATIENT

DRUGS (1)
  1. RUXOLITINIB [Suspect]
     Active Substance: RUXOLITINIB
     Indication: Splenomegaly
     Dosage: 5 MG, BID
     Route: 065

REACTIONS (7)
  - Contusion [Unknown]
  - Thrombocytopenia [Unknown]
  - Hypersplenism [Unknown]
  - Platelet count decreased [Unknown]
  - Gastrointestinal disorder [Unknown]
  - Feeding disorder [Unknown]
  - Weight decreased [Unknown]
